FAERS Safety Report 4849942-3 (Version None)
Quarter: 2005Q4

REPORT INFORMATION
  Report Type: 
  Country: None (occurrence: None)
  Receive Date: 20051101
  Receipt Date: 20050119
  Transmission Date: 20060501
  Serious: Yes (Hospitalization)
  Sender: FDA-Public Use
  Company Number: 2005S1000220

PATIENT
  Age: 58 Year
  Sex: Male

DRUGS (7)
  1. CLOZAPINE [Suspect]
     Indication: SCHIZOPHRENIA, PARANOID TYPE
     Dosage: 25 MG;BID;PO
     Route: 048
     Dates: start: 20050107
  2. CLOZAPINE [Suspect]
     Indication: SCHIZOPHRENIA, PARANOID TYPE
     Dosage: 300 MG;HS;PO
     Route: 048
     Dates: start: 20041217
  3. LORAZEPAM [Concomitant]
  4. LEVOTHYROXINE SODIUM [Concomitant]
  5. OXYBUTYNIN [Concomitant]
  6. ALBUTEROL [Concomitant]
  7. PHENAZOPYRIDINE [Concomitant]

REACTIONS (1)
  - LEUKOPENIA [None]
